FAERS Safety Report 18586936 (Version 1)
Quarter: 2020Q4

REPORT INFORMATION
  Report Type: Spontaneous
  Country: US (occurrence: US)
  Receive Date: 20201207
  Receipt Date: 20201207
  Transmission Date: 20210114
  Serious: Yes (Other)
  Sender: FDA-Public Use
  Company Number: US-ROCHE-2456680

PATIENT
  Sex: Male

DRUGS (1)
  1. VALIUM [Suspect]
     Active Substance: DIAZEPAM
     Indication: PRODUCT USED FOR UNKNOWN INDICATION
     Route: 065

REACTIONS (7)
  - Somnambulism [Unknown]
  - Gingivitis [Unknown]
  - Upper limb fracture [Unknown]
  - Limb injury [Unknown]
  - Spinal compression fracture [Unknown]
  - Tooth fracture [Unknown]
  - Constipation [Unknown]
